FAERS Safety Report 25145209 (Version 2)
Quarter: 2025Q2

REPORT INFORMATION
  Report Type: Spontaneous
  Country: US (occurrence: US)
  Receive Date: 20250401
  Receipt Date: 20250409
  Transmission Date: 20250716
  Serious: No
  Sender: SANOFI AVENTIS
  Company Number: US-SANOFI-02466270

PATIENT
  Age: 58 Year
  Sex: Female

DRUGS (1)
  1. DUPIXENT [Suspect]
     Active Substance: DUPILUMAB
     Indication: Helicobacter infection
     Dosage: 300 MG, QOW
     Route: 058

REACTIONS (3)
  - Injury associated with device [Unknown]
  - Weight decreased [Unknown]
  - Off label use [Unknown]
